FAERS Safety Report 23254065 (Version 1)
Quarter: 2023Q4

REPORT INFORMATION
  Report Type: Spontaneous
  Country: US (occurrence: US)
  Receive Date: 20231202
  Receipt Date: 20231202
  Transmission Date: 20240109
  Serious: Yes (Death, Hospitalization, Other)
  Sender: FDA-Public Use
  Company Number: US-CADILA HEALTHCARE LIMITED-US-ZYDUS-100682

PATIENT

DRUGS (1)
  1. NITROFURANTOIN [Suspect]
     Active Substance: NITROFURANTOIN
     Indication: Urinary tract infection
     Dosage: 100 MILLIGRAM, QD
     Route: 065

REACTIONS (6)
  - Hepatic failure [Fatal]
  - Drug-induced liver injury [Fatal]
  - Ascites [Unknown]
  - Coagulopathy [Unknown]
  - Mental status changes [Unknown]
  - Jaundice [Unknown]
